FAERS Safety Report 7247566-4 (Version None)
Quarter: 2011Q1

REPORT INFORMATION
  Report Type: 
  Country: None (occurrence: None)
  Receive Date: 20110127
  Receipt Date: 20110117
  Transmission Date: 20110831
  Serious: Yes (Other)
  Sender: FDA-Public Use
  Company Number: GR-ROCHE-754058

PATIENT

DRUGS (6)
  1. MESNA [Concomitant]
  2. ONDANSETRON [Concomitant]
  3. METHYLPREDNISOLONE [Suspect]
     Indication: LUPUS NEPHRITIS
     Route: 042
  4. MYCOPHENOLATE MOFETIL [Suspect]
     Indication: LUPUS NEPHRITIS
     Route: 048
  5. CYCLOPHOSPHAMIDE [Suspect]
     Indication: LUPUS NEPHRITIS
     Dosage: DOSE: 1 GRAM/M2. INDUCTION THERAPY.
     Route: 042
  6. METHYLPREDNISOLONE [Concomitant]
     Dosage: SUBSEQUENT DOSE TAPERING BASED ON EXTRARENAL ACTIVITY.
     Route: 048

REACTIONS (12)
  - HERPES ZOSTER [None]
  - AMENORRHOEA [None]
  - ALOPECIA [None]
  - INFUSION RELATED REACTION [None]
  - ABDOMINAL DISCOMFORT [None]
  - GASTRITIS EROSIVE [None]
  - SINUSITIS [None]
  - HYPERCHOLESTEROLAEMIA [None]
  - CYTOMEGALOVIRUS INFECTION [None]
  - CHLAMYDIAL INFECTION [None]
  - VULVOVAGINAL MYCOTIC INFECTION [None]
  - BONE MARROW TOXICITY [None]
